FAERS Safety Report 10459504 (Version 1)
Quarter: 2014Q3

REPORT INFORMATION
  Report Type: Spontaneous
  Country: US (occurrence: US)
  Receive Date: 20140917
  Receipt Date: 20140917
  Transmission Date: 20150326
  Serious: No
  Sender: FDA-Public Use
  Company Number: US-009507513-1409USA005020

PATIENT
  Sex: Male

DRUGS (2)
  1. TINACTIN [Suspect]
     Active Substance: TOLNAFTATE
     Indication: TINEA CRURIS
  2. TINACTIN [Suspect]
     Active Substance: TOLNAFTATE
     Indication: GENITAL INFECTION FUNGAL
     Dosage: 1 DF, BID
     Route: 061

REACTIONS (5)
  - Skin disorder [Not Recovered/Not Resolved]
  - Application site erythema [Recovering/Resolving]
  - Application site pruritus [Recovered/Resolved]
  - Genital hypoaesthesia [Not Recovered/Not Resolved]
  - Application site pain [Recovered/Resolved]
